FAERS Safety Report 25545504 (Version 2)
Quarter: 2025Q3

REPORT INFORMATION
  Report Type: Spontaneous
  Country: AU (occurrence: AU)
  Receive Date: 20250711
  Receipt Date: 20250725
  Transmission Date: 20251020
  Serious: Yes (Other)
  Sender: ASCEND THERAPEUTICS US, LLC
  Company Number: AU-Ascend Therapeutics US, LLC-2180366

PATIENT

DRUGS (2)
  1. ANDROGEL [Suspect]
     Active Substance: TESTOSTERONE
     Indication: Product used for unknown indication
  2. TESTOSTERONE [Suspect]
     Active Substance: TESTOSTERONE

REACTIONS (5)
  - Hypothalamo-pituitary disorder [Unknown]
  - Abnormal weight gain [Unknown]
  - Hormone level abnormal [Unknown]
  - Blood prolactin increased [Unknown]
  - Blood oestrogen increased [Unknown]
